FAERS Safety Report 6711072-3 (Version None)
Quarter: 2010Q2

REPORT INFORMATION
  Report Type: 
  Country: None (occurrence: None)
  Receive Date: 20100505
  Receipt Date: 20090622
  Transmission Date: 20101027
  Serious: No
  Sender: FDA-Public Use
  Company Number: US-KINGPHARMUSA00001-K200900750

PATIENT
  Sex: Female
  Weight: 49.887 kg

DRUGS (3)
  1. AVINZA [Suspect]
     Indication: BACK PAIN
     Dosage: 30 MG, BID
     Dates: start: 20010101
  2. AVINZA [Suspect]
     Dosage: 30 MG, QAM, 60 MG, QPM
     Dates: end: 20090801
  3. AVINZA [Suspect]
     Dosage: 90 MG, UNK
     Route: 048
     Dates: end: 20090801

REACTIONS (6)
  - DIZZINESS [None]
  - DRUG DIVERSION [None]
  - DRUG INEFFECTIVE [None]
  - HEADACHE [None]
  - HYPERSOMNIA [None]
  - NAUSEA [None]
